FAERS Safety Report 16972220 (Version 6)
Quarter: 2020Q2

REPORT INFORMATION
  Report Type: Spontaneous
  Country: US (occurrence: US)
  Receive Date: 20191029
  Receipt Date: 20200617
  Transmission Date: 20200713
  Serious: Yes (Hospitalization)
  Sender: FDA-Public Use
  Company Number: US-ACTELION-A-NJ2019-197310

PATIENT
  Sex: Male

DRUGS (1)
  1. UPTRAVI [Suspect]
     Active Substance: SELEXIPAG
     Indication: PULMONARY ARTERIAL HYPERTENSION
     Dosage: 1600 MCG, BID
     Route: 048
     Dates: start: 20190620

REACTIONS (8)
  - Cerebrovascular accident [Unknown]
  - Dry eye [Unknown]
  - Ocular hyperaemia [Unknown]
  - Headache [Unknown]
  - Eye disorder [Unknown]
  - Eye pruritus [Unknown]
  - Ageusia [Unknown]
  - Conjunctivitis [Unknown]
